FAERS Safety Report 25746214 (Version 3)
Quarter: 2025Q3

REPORT INFORMATION
  Report Type: Spontaneous
  Country: CN (occurrence: CN)
  Receive Date: 20250901
  Receipt Date: 20250910
  Transmission Date: 20251020
  Serious: Yes (Hospitalization, Other)
  Sender: SANOFI AVENTIS
  Company Number: CN-SANOFI-02624831

PATIENT
  Sex: Male

DRUGS (3)
  1. PLAVIX [Suspect]
     Active Substance: CLOPIDOGREL BISULFATE
     Route: 065
     Dates: start: 202503
  2. LIPITOR [Concomitant]
     Active Substance: ATORVASTATIN CALCIUM
  3. ASPIRIN [Concomitant]
     Active Substance: ASPIRIN

REACTIONS (7)
  - Cerebral infarction [Unknown]
  - Thrombosis [Unknown]
  - Hospitalisation [Unknown]
  - Expired product administered [Unknown]
  - Chest pain [Unknown]
  - Dizziness [Unknown]
  - Epistaxis [Unknown]

NARRATIVE: CASE EVENT DATE: 20250701
